FAERS Safety Report 7382185-0 (Version None)
Quarter: 2011Q1

REPORT INFORMATION
  Report Type: 
  Country: None (occurrence: None)
  Receive Date: 20110329
  Receipt Date: 20101223
  Transmission Date: 20110831
  Serious: No
  Sender: FDA-Public Use
  Company Number: US-BAYER-2011-026257

PATIENT
  Sex: Male
  Weight: 95 kg

DRUGS (2)
  1. ALEVE (CAPLET) [Suspect]
     Indication: MUSCLE STRAIN
  2. ALEVE (CAPLET) [Suspect]
     Indication: MYALGIA

REACTIONS (1)
  - DRUG SCREEN POSITIVE [None]
